FAERS Safety Report 8482389-X (Version None)
Quarter: 2012Q3

REPORT INFORMATION
  Report Type: 
  Country: None (occurrence: None)
  Receive Date: 20120702
  Receipt Date: 20120622
  Transmission Date: 20120928
  Serious: Yes (Death)
  Sender: FDA-Public Use
  Company Number: US-GLAXOSMITHKLINE-A0734387A

PATIENT
  Age: 60 Year
  Sex: Male
  Weight: 113.6 kg

DRUGS (10)
  1. ZOCOR [Concomitant]
     Dates: start: 20060208
  2. WELLBUTRIN XL [Concomitant]
     Dates: start: 20030930, end: 20040201
  3. AVANDAMET [Suspect]
     Indication: TYPE 2 DIABETES MELLITUS
     Dosage: 2MG TWICE PER DAY
     Route: 048
     Dates: start: 20021211, end: 20060101
  4. PREDNISONE [Concomitant]
     Dates: start: 20040101
  5. AVANDIA [Suspect]
     Indication: TYPE 2 DIABETES MELLITUS
     Dosage: 4MG TWICE PER DAY
     Route: 048
     Dates: start: 20020404, end: 20070424
  6. PAXIL [Concomitant]
     Dates: start: 20021201, end: 20030601
  7. TIMOLOL MALEATE [Concomitant]
     Dates: start: 20020219, end: 20030801
  8. METFORMIN HCL [Concomitant]
     Dates: start: 20020404, end: 20020712
  9. AMARYL [Concomitant]
     Dates: start: 20040904, end: 20041019
  10. LANTUS [Concomitant]
     Dates: start: 20050930, end: 20070401

REACTIONS (4)
  - NEPHROPATHY [None]
  - MYOCARDIAL INFARCTION [None]
  - CARDIO-RESPIRATORY ARREST [None]
  - HEART INJURY [None]
